FAERS Safety Report 6847247-2 (Version None)
Quarter: 2010Q3

REPORT INFORMATION
  Report Type: 
  Country: None (occurrence: None)
  Receive Date: 20100716
  Receipt Date: 20100708
  Transmission Date: 20110219
  Serious: Yes (Death, Other)
  Sender: FDA-Public Use
  Company Number: US-CELGENEUS-163-21880-10070823

PATIENT

DRUGS (8)
  1. REVLIMID [Suspect]
     Route: 048
  2. REVLIMID [Suspect]
     Indication: MANTLE CELL LYMPHOMA
     Route: 048
  3. REVLIMID [Suspect]
     Indication: LYMPHOMA
     Route: 048
  4. REVLIMID [Suspect]
     Route: 048
  5. RITUXIMAB [Suspect]
     Route: 051
  6. RITUXIMAB [Suspect]
     Indication: MANTLE CELL LYMPHOMA
  7. RITUXIMAB [Suspect]
     Indication: LYMPHOMA
  8. ALLOPURINOL [Concomitant]
     Indication: PRODUCT USED FOR UNKNOWN INDICATION
     Route: 048

REACTIONS (9)
  - EMBOLISM ARTERIAL [None]
  - ENDOCARDITIS [None]
  - FATIGUE [None]
  - HYPERCALCAEMIA [None]
  - INFECTION [None]
  - INFLUENZA LIKE ILLNESS [None]
  - NEUTROPENIA [None]
  - RENAL FAILURE ACUTE [None]
  - TUMOUR FLARE [None]
